FAERS Safety Report 17570904 (Version 1)
Quarter: 2020Q1

REPORT INFORMATION
  Report Type: Spontaneous
  Country: US (occurrence: US)
  Receive Date: 20200323
  Receipt Date: 20200323
  Transmission Date: 20200409
  Serious: No
  Sender: FDA-Public Use
  Company Number: US-PFIZER INC-2020119130

PATIENT
  Age: 75 Year
  Sex: Male

DRUGS (1)
  1. VYNDAQEL [Suspect]
     Active Substance: TAFAMIDIS MEGLUMINE
     Indication: AMYLOIDOSIS
     Dosage: 80 MG, DAILY (TAKE 4 CAPSULE EVERY DAY)
     Route: 048
     Dates: end: 20200317

REACTIONS (9)
  - Abdominal distension [Unknown]
  - Restless legs syndrome [Unknown]
  - Off label use [Unknown]
  - Weight increased [Unknown]
  - Tachycardia [Unknown]
  - Palpitations [Unknown]
  - Oedema [Unknown]
  - Peripheral swelling [Unknown]
  - Product use in unapproved indication [Unknown]
